FAERS Safety Report 14225690 (Version 2)
Quarter: 2017Q4

REPORT INFORMATION
  Report Type: Spontaneous
  Country: IE (occurrence: IE)
  Receive Date: 20171127
  Receipt Date: 20171128
  Transmission Date: 20180321
  Serious: Yes (Death)
  Sender: FDA-Public Use
  Company Number: PHHY2017IE174239

PATIENT
  Age: 58 Year
  Sex: Male

DRUGS (4)
  1. SEPTRAN [Concomitant]
     Indication: PROPHYLAXIS
     Dosage: 950 MG, 3 DAYS/ WEEK
     Route: 048
     Dates: start: 201709
  2. DEXAMETHASONE. [Concomitant]
     Active Substance: DEXAMETHASONE
     Indication: BRAIN OEDEMA
     Dosage: 1 MG, QD
     Route: 048
     Dates: start: 201709
  3. MEKINIST [Suspect]
     Active Substance: TRAMETINIB DIMETHYL SULFOXIDE
     Indication: METASTATIC MALIGNANT MELANOMA
     Dosage: 2 MG, QD
     Route: 048
     Dates: start: 20171027
  4. DABRAFENIB [Suspect]
     Active Substance: DABRAFENIB
     Indication: METASTATIC MALIGNANT MELANOMA
     Dosage: 150 MG, BID
     Route: 048
     Dates: start: 20171003

REACTIONS (5)
  - Cardiac arrest [Fatal]
  - Dyspnoea [Fatal]
  - Fall [Fatal]
  - Pulmonary embolism [Fatal]
  - Loss of consciousness [Fatal]

NARRATIVE: CASE EVENT DATE: 20171117
